FAERS Safety Report 4821973-9 (Version None)
Quarter: 2005Q4

REPORT INFORMATION
  Report Type: 
  Country: None (occurrence: None)
  Receive Date: 20051103
  Receipt Date: 20051028
  Transmission Date: 20060501
  Serious: Yes (Hospitalization)
  Sender: FDA-Public Use
  Company Number: 2005147673

PATIENT
  Age: 63 Year
  Sex: Male

DRUGS (5)
  1. PREGABALIN            (PREGABALIN) [Suspect]
     Indication: NEURALGIA
     Dosage: 225 MG (75 MG, 3 IN 1 D), ORAL
     Route: 048
     Dates: start: 20050510, end: 20051001
  2. METHOTREXATE [Concomitant]
  3. PREDNISONE [Concomitant]
  4. NSAID'S [Concomitant]
  5. BROMAZEPAM [Concomitant]

REACTIONS (5)
  - COAGULOPATHY [None]
  - HEPATIC FAILURE [None]
  - PULMONARY EMBOLISM [None]
  - RENAL FAILURE [None]
  - RESPIRATORY FAILURE [None]
